FAERS Safety Report 25962200 (Version 2)
Quarter: 2025Q4

REPORT INFORMATION
  Report Type: Report from Study
  Country: CA (occurrence: CA)
  Receive Date: 20251027
  Receipt Date: 20251218
  Transmission Date: 20260118
  Serious: Yes (Other)
  Sender: JOHNSON AND JOHNSON
  Company Number: CA-JNJFOC-20251027211

PATIENT
  Age: 72 Year
  Sex: Female

DRUGS (2)
  1. TREMFYA [Suspect]
     Active Substance: GUSELKUMAB
     Indication: Psoriasis
     Route: 058
  2. TREMFYA [Suspect]
     Active Substance: GUSELKUMAB
     Dosage: LAST DOSE ADMINISTERED ON 22-OCT-2025
     Route: 058

REACTIONS (3)
  - Hepatic fibrosis [Unknown]
  - Alanine aminotransferase increased [Recovering/Resolving]
  - Alcohol use [Unknown]
